FAERS Safety Report 8007099-4 (Version None)
Quarter: 2011Q4

REPORT INFORMATION
  Report Type: 
  Country: None (occurrence: None)
  Receive Date: 20111227
  Receipt Date: 20111221
  Transmission Date: 20120403
  Serious: Yes (Other)
  Sender: FDA-Public Use
  Company Number: US-JNJFOC-2010024214

PATIENT
  Age: 48 Year
  Sex: Male

DRUGS (2)
  1. ROGAINE [Suspect]
     Indication: ALCOHOL USE
     Dosage: DAILY DOSE TEXT: ENTIRE 8 OZ. BOTTLE
     Route: 048
  2. ROGAINE [Suspect]
     Route: 048

REACTIONS (3)
  - TOXICITY TO VARIOUS AGENTS [None]
  - INTENTIONAL DRUG MISUSE [None]
  - INCORRECT ROUTE OF DRUG ADMINISTRATION [None]
